FAERS Safety Report 6477618-8 (Version None)
Quarter: 2009Q4

REPORT INFORMATION
  Report Type: 
  Country: None (occurrence: None)
  Receive Date: 20091204
  Receipt Date: 20091204
  Transmission Date: 20100525
  Serious: Yes (Other)
  Sender: FDA-Public Use
  Company Number: None

PATIENT
  Sex: Female
  Weight: 104.3273 kg

DRUGS (2)
  1. VESICARE 10 MG ASTELLAS PHARMA TECHNOLOGIES, INC. [Suspect]
     Indication: BLADDER SPASM
     Dosage: 10 MG ONCE DAILY PO
     Route: 048
     Dates: start: 20091122, end: 20091203
  2. VESICARE 10 MG ASTELLAS PHARMA TECHNOLOGIES, INC. [Suspect]
     Indication: URINARY INCONTINENCE
     Dosage: 10 MG ONCE DAILY PO
     Route: 048
     Dates: start: 20091122, end: 20091203

REACTIONS (2)
  - DRUG HYPERSENSITIVITY [None]
  - URGE INCONTINENCE [None]
